FAERS Safety Report 12995696 (Version 1)
Quarter: 2016Q4

REPORT INFORMATION
  Report Type: Spontaneous
  Country: GB (occurrence: GB)
  Receive Date: 20161202
  Receipt Date: 20161202
  Transmission Date: 20170207
  Serious: Yes (Other)
  Sender: FDA-Public Use
  Company Number: GB-TEVA-715953ISR

PATIENT
  Age: 45 Year
  Sex: Male

DRUGS (3)
  1. FLUOXETINE [Concomitant]
     Active Substance: FLUOXETINE HYDROCHLORIDE
     Dosage: 20 MG
     Route: 065
  2. NEFOPAM [Concomitant]
     Active Substance: NEFOPAM
     Dosage: 180 MILLIGRAM DAILY;
     Route: 065
  3. LOPERAMIDE [Suspect]
     Active Substance: LOPERAMIDE
     Indication: DIARRHOEA
     Dosage: 40-50 MG DAILY, FOR A MINIMUM OF 6 MONTHS.
     Route: 065
     Dates: start: 2012

REACTIONS (4)
  - Adrenal insufficiency [Recovering/Resolving]
  - Hypopituitarism [Recovering/Resolving]
  - Hypogonadism male [Recovering/Resolving]
  - Overdose [Unknown]

NARRATIVE: CASE EVENT DATE: 2012
